APPROVED DRUG PRODUCT: SAFINAMIDE MESYLATE
Active Ingredient: SAFINAMIDE MESYLATE
Strength: EQ 50MG BASE
Dosage Form/Route: TABLET;ORAL
Application: A215739 | Product #001 | TE Code: AB
Applicant: PRINSTON PHARMACEUTICAL INC
Approved: Apr 25, 2024 | RLD: No | RS: No | Type: RX